FAERS Safety Report 10429411 (Version 2)
Quarter: 2014Q3

REPORT INFORMATION
  Report Type: Spontaneous
  Country: GB (occurrence: GB)
  Receive Date: 20140904
  Receipt Date: 20140904
  Transmission Date: 20150326
  Serious: Yes (Death, Hospitalization, Other)
  Sender: FDA-Public Use
  Company Number: GB-AUROBINDO-AUR-APL-2014-00021

PATIENT
  Age: 80 Year
  Sex: Male

DRUGS (4)
  1. PIOGLITAZONE AUROBINDO TABLETS 15 MG [Suspect]
     Active Substance: PIOGLITAZONE
     Dosage: 45 MG,ONCE A DAY,
     Route: 065
     Dates: end: 201402
  2. FLUOXETINE [Concomitant]
     Active Substance: FLUOXETINE\FLUOXETINE HYDROCHLORIDE
     Indication: DEPRESSION
     Dosage: UNK
     Route: 065
  3. PIOGLITAZONE AUROBINDO TABLETS 15 MG [Suspect]
     Active Substance: PIOGLITAZONE
     Indication: DIABETES MELLITUS
     Dosage: 75 MG,ONCE A DAY,
     Route: 065
     Dates: start: 201301, end: 201305
  4. PIOGLITAZONE AUROBINDO TABLETS 15 MG [Suspect]
     Active Substance: PIOGLITAZONE
     Dosage: 75 MG,ONCE A DAY,
     Route: 065
     Dates: start: 201308, end: 201311

REACTIONS (13)
  - Confusional state [Unknown]
  - Fall [Unknown]
  - Prescribed overdose [Unknown]
  - Sleep talking [Unknown]
  - Hallucination, auditory [Unknown]
  - Malaise [Unknown]
  - Campylobacter gastroenteritis [Unknown]
  - General physical health deterioration [Unknown]
  - Disturbance in attention [Unknown]
  - Apathy [Unknown]
  - Mobility decreased [Unknown]
  - Off label use [Unknown]
  - Orthostatic hypotension [Unknown]

NARRATIVE: CASE EVENT DATE: 2013
